FAERS Safety Report 7651711-6 (Version None)
Quarter: 2011Q3

REPORT INFORMATION
  Report Type: 
  Country: None (occurrence: None)
  Receive Date: 20110802
  Receipt Date: 20110719
  Transmission Date: 20111222
  Serious: Yes (Other)
  Sender: FDA-Public Use
  Company Number: US-ASTRAZENECA-2011SE43384

PATIENT
  Age: 57 Year
  Sex: Male

DRUGS (3)
  1. CRESTOR [Suspect]
     Route: 048
  2. LIPITOR [Concomitant]
  3. ZOLOFT [Concomitant]

REACTIONS (4)
  - SKIN HAEMORRHAGE [None]
  - EXERCISE TOLERANCE DECREASED [None]
  - SKIN CANCER [None]
  - HEAT EXHAUSTION [None]
